FAERS Safety Report 7903741-4 (Version None)
Quarter: 2011Q4

REPORT INFORMATION
  Report Type: 
  Country: None (occurrence: None)
  Receive Date: 20111109
  Receipt Date: 20111027
  Transmission Date: 20120403
  Serious: Yes (Hospitalization, Other)
  Sender: FDA-Public Use
  Company Number: PHHY2011DE95611

PATIENT
  Age: 19 Year
  Sex: Female

DRUGS (3)
  1. FLUOROURACIL [Suspect]
     Dosage: 1000 MG/M2 (FOR 5 CONSECUTIVE DAYS)
  2. CISPLATIN [Concomitant]
     Indication: NASOPHARYNGEAL CANCER
     Dosage: 100 MG/M2, UNK
  3. FOLIC ACID [Concomitant]
     Indication: NASOPHARYNGEAL CANCER
     Dosage: 25 MG/M2 (6 DOSES)

REACTIONS (28)
  - LACTIC ACIDOSIS [None]
  - RENAL FAILURE [None]
  - OESOPHAGEAL STENOSIS [None]
  - VITAMIN B1 DEFICIENCY [None]
  - ACQUIRED PYRIMIDINE METABOLISM DISORDER [None]
  - ASCITES [None]
  - PERICARDIAL EFFUSION [None]
  - OEDEMA PERIPHERAL [None]
  - PLEURAL EFFUSION [None]
  - MIOSIS [None]
  - EYELID PTOSIS [None]
  - ELECTROLYTE IMBALANCE [None]
  - PARAESTHESIA [None]
  - HALLUCINATION [None]
  - BODY TEMPERATURE FLUCTUATION [None]
  - SENSORY LOSS [None]
  - LIVER DISORDER [None]
  - NERVE ROOT LESION [None]
  - MUCOSAL INFLAMMATION [None]
  - VISUAL ACUITY REDUCED [None]
  - PUPILLARY REFLEX IMPAIRED [None]
  - BONE MARROW FAILURE [None]
  - NEUROPATHY PERIPHERAL [None]
  - DYSARTHRIA [None]
  - HYPERBILIRUBINAEMIA [None]
  - COAGULOPATHY [None]
  - BLOOD PRESSURE ABNORMAL [None]
  - DEPRESSED LEVEL OF CONSCIOUSNESS [None]
